FAERS Safety Report 16117102 (Version 1)
Quarter: 2019Q1

REPORT INFORMATION
  Report Type: Spontaneous
  Country: US (occurrence: US)
  Receive Date: 20190221
  Receipt Date: 20190221
  Transmission Date: 20190418
  Serious: No
  Sender: FDA-Public Use
  Company Number: None

PATIENT
  Age: 79 Year
  Sex: Female
  Weight: 65.77 kg

DRUGS (6)
  1. SEREVENT DISKUS [Concomitant]
     Active Substance: SALMETEROL XINAFOATE
  2. PRO AIR RESCUE INHALER [Concomitant]
  3. SYNTHROID [Concomitant]
     Active Substance: LEVOTHYROXINE SODIUM
  4. PULMICORT TURBUHALER [Concomitant]
     Active Substance: BUDESONIDE
  5. QVAR REDIHALER [Suspect]
     Active Substance: BECLOMETHASONE DIPROPIONATE
     Indication: ASTHMA
     Dosage: ?          QUANTITY:80 UG MICROGRAM(S);?
     Route: 048
     Dates: start: 20180701, end: 20180725
  6. AMLODIPINE [Concomitant]
     Active Substance: AMLODIPINE BESYLATE

REACTIONS (4)
  - Eye pain [None]
  - Chest discomfort [None]
  - Headache [None]
  - Product quality issue [None]

NARRATIVE: CASE EVENT DATE: 201807
